FAERS Safety Report 9077323 (Version 1)
Quarter: 2013Q1

REPORT INFORMATION
  Report Type: Spontaneous
  Country: US (occurrence: US)
  Receive Date: 20130130
  Receipt Date: 20130130
  Transmission Date: 20140127
  Serious: No
  Sender: FDA-Public Use
  Company Number: US-BAYER-2013-001853

PATIENT
  Age: 29 Year
  Sex: Female
  Weight: 47 kg

DRUGS (2)
  1. ALKA-SELTZER PLUS DAY,ALKA-SELTZER PLUS NIGHT [Suspect]
     Indication: NASAL CONGESTION
     Dosage: 2 DF, OTHER FREQUENCY
     Route: 048
     Dates: start: 20121228, end: 20121229
  2. IBUPROFEN [Concomitant]

REACTIONS (2)
  - Nasal congestion [Recovered/Resolved]
  - Drug ineffective [None]
